FAERS Safety Report 6505478-5 (Version None)
Quarter: 2009Q4

REPORT INFORMATION
  Report Type: 
  Country: None (occurrence: None)
  Receive Date: 20091218
  Receipt Date: 20091207
  Transmission Date: 20100525
  Serious: Yes (Hospitalization)
  Sender: FDA-Public Use
  Company Number: DE-AMGEN-US379741

PATIENT
  Age: 72 Year
  Sex: Female

DRUGS (9)
  1. ENBREL [Suspect]
     Indication: RHEUMATOID ARTHRITIS
     Route: 058
     Dates: start: 20090409
  2. ENBREL [Suspect]
     Indication: POLYARTHRITIS
  3. CALCIUM [Concomitant]
     Dosage: UNKNOWN
     Route: 065
  4. MELPERONE HYDROCHLORIDE [Concomitant]
     Route: 065
  5. RANTUDIL [Concomitant]
     Dosage: UNKNOWN
     Route: 065
  6. PLEON [Concomitant]
     Route: 065
  7. DYTIDE [Concomitant]
     Dosage: UNKNOWN
     Route: 065
  8. LYRICA [Concomitant]
     Dosage: 75 MG (FREQUENCY UNKNOWN)
     Route: 065
  9. BENSERAZIDE HYDROCHLORIDE/LEVODOPA [Concomitant]
     Dosage: UNKNOWN
     Route: 065

REACTIONS (1)
  - BONE PAIN [None]
